FAERS Safety Report 16512814 (Version 1)
Quarter: 2019Q3

REPORT INFORMATION
  Report Type: Spontaneous
  Country: US (occurrence: US)
  Receive Date: 20190702
  Receipt Date: 20190702
  Transmission Date: 20191004
  Serious: Yes (Other)
  Sender: FDA-Public Use
  Company Number: US-VELOXIS PHARMACEUTICALS, INC.-2019VELUS1599

PATIENT
  Sex: Female

DRUGS (7)
  1. ENVARSUS XR [Suspect]
     Active Substance: TACROLIMUS
     Indication: PANCREAS TRANSPLANT
     Dosage: 2 MG, QD
     Route: 065
     Dates: start: 20190326
  2. MYCOPHENOLIC ACID. [Concomitant]
     Active Substance: MYCOPHENOLIC ACID
     Dosage: 360 MG, Q12H
     Dates: start: 201606
  3. MYCOPHENOLIC ACID. [Concomitant]
     Active Substance: MYCOPHENOLIC ACID
     Indication: PANCREAS TRANSPLANT
     Dosage: 720 MG, Q12H
     Dates: start: 20151215, end: 201606
  4. TACROLIMUS. [Concomitant]
     Active Substance: TACROLIMUS
     Indication: PANCREAS TRANSPLANT
     Dosage: 2 MG, Q12H
     Route: 048
     Dates: start: 20151215
  5. TACROLIMUS. [Concomitant]
     Active Substance: TACROLIMUS
     Dosage: 1 MG Q AM/1.5 MG Q PM
     Route: 048
     Dates: end: 20180625
  6. PREDNISONE. [Concomitant]
     Active Substance: PREDNISONE
     Indication: PANCREAS TRANSPLANT
     Dosage: 5 MG, QD
     Dates: start: 20151215
  7. TACROLIMUS. [Concomitant]
     Active Substance: TACROLIMUS
     Dosage: 1 MG, Q12H
     Route: 048
     Dates: start: 20180626, end: 20190326

REACTIONS (4)
  - Intentional product use issue [Unknown]
  - Blood glucose increased [Unknown]
  - Pancreatic necrosis [Unknown]
  - Pancreas transplant rejection [Unknown]

NARRATIVE: CASE EVENT DATE: 20190617
